FAERS Safety Report 24965848 (Version 3)
Quarter: 2025Q1

REPORT INFORMATION
  Report Type: Spontaneous
  Country: IT (occurrence: IT)
  Receive Date: 20250213
  Receipt Date: 20250307
  Transmission Date: 20250409
  Serious: Yes (Hospitalization)
  Sender: OTSUKA
  Company Number: IT-ABCFARMA-20241561

PATIENT
  Age: 29 Year
  Sex: Male

DRUGS (25)
  1. ARIPIPRAZOLE [Suspect]
     Active Substance: ARIPIPRAZOLE
     Indication: Psychiatric decompensation
     Route: 048
  2. ARIPIPRAZOLE [Suspect]
     Active Substance: ARIPIPRAZOLE
     Indication: Acute psychosis
  3. ARIPIPRAZOLE [Suspect]
     Active Substance: ARIPIPRAZOLE
     Indication: Antipsychotic therapy
     Route: 065
  4. CLOZAPINE [Suspect]
     Active Substance: CLOZAPINE
     Indication: Psychiatric decompensation
     Dosage: UNK (200-300MG), QD
     Route: 065
     Dates: start: 2023
  5. CLOZAPINE [Suspect]
     Active Substance: CLOZAPINE
     Indication: Schizophrenia
     Dosage: 250 MG, QD
     Route: 065
     Dates: start: 2024
  6. CLOZAPINE [Suspect]
     Active Substance: CLOZAPINE
     Indication: Psychiatric decompensation
  7. OLANZAPINE [Suspect]
     Active Substance: OLANZAPINE
     Indication: Psychiatric decompensation
     Route: 048
  8. OLANZAPINE [Suspect]
     Active Substance: OLANZAPINE
     Indication: Psychiatric decompensation
  9. INVEGA [Suspect]
     Active Substance: PALIPERIDONE
     Indication: Psychiatric decompensation
     Route: 048
  10. HALOPERIDOL [Suspect]
     Active Substance: HALOPERIDOL
     Indication: Psychiatric decompensation
     Dosage: UP TO 6 MG/DAY
     Route: 048
     Dates: start: 2024
  11. HALOPERIDOL [Suspect]
     Active Substance: HALOPERIDOL
     Indication: Schizophrenia
  12. HALOPERIDOL [Suspect]
     Active Substance: HALOPERIDOL
     Indication: Psychiatric decompensation
  13. HALOPERIDOL [Suspect]
     Active Substance: HALOPERIDOL
     Indication: Psychiatric decompensation
     Route: 030
  14. HALOPERIDOL [Suspect]
     Active Substance: HALOPERIDOL
     Indication: Schizophrenia
     Dosage: UP TO 6 MG/DAY
     Route: 030
     Dates: start: 2024
  15. PALIPERIDONE PALMITATE [Suspect]
     Active Substance: PALIPERIDONE PALMITATE
     Indication: Antipsychotic therapy
     Route: 065
  16. HALOPERIDOL DECANOATE [Suspect]
     Active Substance: HALOPERIDOL DECANOATE
     Indication: Antipsychotic therapy
     Route: 065
     Dates: start: 2011
  17. HALOPERIDOL DECANOATE [Suspect]
     Active Substance: HALOPERIDOL DECANOATE
     Indication: Depression
  18. SERTRALINE [Suspect]
     Active Substance: SERTRALINE HYDROCHLORIDE
     Indication: Psychiatric decompensation
     Route: 065
     Dates: start: 2011
  19. SERTRALINE [Suspect]
     Active Substance: SERTRALINE HYDROCHLORIDE
     Indication: Depression
  20. QUETIAPINE [Suspect]
     Active Substance: QUETIAPINE
     Indication: Psychiatric decompensation
     Route: 065
     Dates: start: 2011
  21. QUETIAPINE [Suspect]
     Active Substance: QUETIAPINE
     Indication: Depression
  22. LORAZEPAM [Suspect]
     Active Substance: LORAZEPAM
     Indication: Schizophrenia
     Dosage: UP TO 12 MG, QD
     Route: 065
     Dates: start: 2024
  23. LORAZEPAM [Suspect]
     Active Substance: LORAZEPAM
     Indication: Psychiatric decompensation
  24. LURASIDONE [Suspect]
     Active Substance: LURASIDONE
     Indication: Schizophrenia
     Route: 065
  25. LURASIDONE [Suspect]
     Active Substance: LURASIDONE
     Dosage: TITRATED UP TO 111MG/DAY
     Route: 065

REACTIONS (13)
  - Psychiatric decompensation [Recovering/Resolving]
  - Condition aggravated [Recovering/Resolving]
  - Asocial behaviour [Recovering/Resolving]
  - Delusional disorder, persecutory type [Recovering/Resolving]
  - Behaviour disorder [Recovering/Resolving]
  - Psychomotor hyperactivity [Recovering/Resolving]
  - Apathy [Recovering/Resolving]
  - Depression [Recovering/Resolving]
  - Irritability [Recovering/Resolving]
  - Drug ineffective [Unknown]
  - Therapy partial responder [Unknown]
  - Treatment noncompliance [Unknown]
  - Product use in unapproved indication [Unknown]

NARRATIVE: CASE EVENT DATE: 20150101
